FAERS Safety Report 6805265-4 (Version None)
Quarter: 2010Q2

REPORT INFORMATION
  Report Type: 
  Country: None (occurrence: None)
  Receive Date: 20100628
  Receipt Date: 20100628
  Transmission Date: 20101027
  Serious: Yes (Other)
  Sender: FDA-Public Use
  Company Number: None

PATIENT
  Age: 41 Year
  Sex: Female
  Weight: 114.76 kg

DRUGS (1)
  1. ZICAM EXTREME CONGESTION RELIEF OXYMETAZOLINE HCL 0.05% ZICAM [Suspect]
     Indication: NASAL CONGESTION
     Dosage: 2 PUMPS 12 HOURS NASAL
     Route: 045
     Dates: start: 20100622, end: 20100625

REACTIONS (3)
  - ANOSMIA [None]
  - NASAL DISCOMFORT [None]
  - PAROSMIA [None]
